FAERS Safety Report 7264578-5 (Version None)
Quarter: 2011Q1

REPORT INFORMATION
  Report Type: 
  Country: None (occurrence: None)
  Receive Date: 20110131
  Receipt Date: 20110125
  Transmission Date: 20110831
  Serious: No
  Sender: FDA-Public Use
  Company Number: US-PFIZER INC-2011017942

PATIENT
  Sex: Female
  Weight: 63 kg

DRUGS (4)
  1. CHANTIX [Suspect]
     Dosage: 0.5 MG, 1X/DAY
     Route: 048
     Dates: start: 20110101, end: 20110101
  2. CHANTIX [Suspect]
     Dosage: 1 MG, 1X/DAY
     Dates: start: 20110101, end: 20110115
  3. EFFEXOR [Concomitant]
     Indication: ANXIETY
     Dosage: UNK
  4. CHANTIX [Suspect]
     Indication: SMOKING CESSATION THERAPY
     Dosage: 0.5 MG, 1X/DAY
     Route: 048
     Dates: start: 20090601, end: 20090701

REACTIONS (3)
  - MALAISE [None]
  - STOMATITIS [None]
  - SKIN LESION [None]
